FAERS Safety Report 15709481 (Version 1)
Quarter: 2018Q4

REPORT INFORMATION
  Report Type: Spontaneous
  Country: GB (occurrence: GB)
  Receive Date: 20181211
  Receipt Date: 20181211
  Transmission Date: 20190205
  Serious: Yes (Other)
  Sender: FDA-Public Use
  Company Number: GB-PFIZER INC-2018503356

PATIENT
  Age: 73 Year
  Sex: Male
  Weight: 67 kg

DRUGS (29)
  1. BALSALAZIDE [Concomitant]
     Active Substance: BALSALAZIDE
     Dosage: 9 DF, 1X/DAY
     Dates: start: 20160906
  2. SILDENAFIL. [Concomitant]
     Active Substance: SILDENAFIL
     Dosage: 1 DF, (AS DIRECTED)
     Dates: start: 20160729, end: 20180917
  3. EPADERM [Concomitant]
     Active Substance: MINERAL OIL\PETROLATUM\WAX, EMULSIFYING
     Dosage: UNK (APPLY TO SKIN OR USE AS A SOAP SUBSTITUTE)
     Dates: start: 20160209
  4. LANSOPRAZOLE. [Concomitant]
     Active Substance: LANSOPRAZOLE
     Dosage: 2 DF, 1X/DAY
     Dates: start: 20160209
  5. ALENDRONIC ACID [Concomitant]
     Active Substance: ALENDRONIC ACID
     Dosage: 1 DF, WEEKLY
     Dates: start: 20160209, end: 20181004
  6. BUPRENORPHINE. [Concomitant]
     Active Substance: BUPRENORPHINE
     Dosage: 1 DF, WEEKLY
     Dates: start: 20180614
  7. MESALAZINE [Concomitant]
     Active Substance: MESALAMINE
     Dosage: UNK (INSERT ONE METERED APPLICATION INTO THE RECTUM)
     Route: 054
     Dates: start: 20161123, end: 20181004
  8. MOVICOL [Concomitant]
     Active Substance: POLYETHYLENE GLYCOL 3350\POTASSIUM CHLORIDE\SODIUM BICARBONATE\SODIUM CHLORIDE
     Dosage: UNK (HALF, ONE OR TWO (OR MORE) SACHETS TO BE TAKEN)
     Dates: start: 20180723
  9. GABAPENTIN. [Concomitant]
     Active Substance: GABAPENTIN
     Dosage: 9 DF, 1X/DAY
     Dates: start: 20180731, end: 20180807
  10. PREDNISOLONE. [Concomitant]
     Active Substance: PREDNISOLONE
     Dosage: 2 DF, 1X/DAY (APPLY)
     Dates: start: 20160209, end: 20181004
  11. FLUCONAZOLE. [Suspect]
     Active Substance: FLUCONAZOLE
     Dosage: 150 MG, 1X/DAY
     Dates: start: 20181101
  12. SODIUM CROMOGLICATE [Concomitant]
     Active Substance: CROMOLYN SODIUM
     Dosage: UNK (AS DIRECTED)
     Dates: start: 20160209
  13. MICONAZOLE. [Concomitant]
     Active Substance: MICONAZOLE
     Dosage: 4 DF, 1X/DAY
     Dates: start: 20181105
  14. AMOXICILLIN. [Concomitant]
     Active Substance: AMOXICILLIN
     Dosage: 3 DF, 1X/DAY
     Dates: start: 20181025, end: 20181101
  15. SEEBRI BREEZHALER [Concomitant]
     Active Substance: GLYCOPYRROLATE
     Dosage: 1 DF, 1X/DAY
     Route: 055
     Dates: start: 20160209
  16. DUORESP SPIROMAX [Concomitant]
     Active Substance: BUDESONIDE\FORMOTEROL
     Dosage: 2 DF, 1X/DAY (PUFF)
     Route: 055
     Dates: start: 20180524
  17. PARACETAMOL [Concomitant]
     Active Substance: ACETAMINOPHEN
     Indication: PAIN
     Dosage: 8 DF, 1X/DAY
     Dates: start: 20160314
  18. COLIFOAM [Concomitant]
     Active Substance: HYDROCORTISONE
     Dosage: 1 DF, 1X/DAY
     Dates: start: 20161123, end: 20181004
  19. CARBOCISTEINE [Concomitant]
     Active Substance: CARBOCYSTEINE
     Dosage: 6 DF, 1X/DAY
     Dates: start: 20171110, end: 20180926
  20. DENOSUMAB [Concomitant]
     Active Substance: DENOSUMAB
     Dosage: 1 DF, UNKNOWN FREQUENCY (OCTOBER AND APRIL)
     Dates: start: 20181018
  21. BUDESONIDE. [Concomitant]
     Active Substance: BUDESONIDE
     Dosage: 1 DF, 1X/DAY (USE)
     Dates: start: 20180910
  22. SALBUTAMOL [Concomitant]
     Active Substance: ALBUTEROL
     Dosage: 2 DF, (TWO PUFFS FOUR TIMES A DAY AS REQUIRED)
     Dates: start: 20160209
  23. TRIAMCINOLONE ACETONIDE. [Concomitant]
     Active Substance: TRIAMCINOLONE ACETONIDE
     Dosage: 1 DF, 1X/DAY (PUFF)
     Dates: start: 20160209
  24. ADCAL [CALCIUM CARBONATE] [Concomitant]
     Dosage: 2 DF, 1X/DAY
     Dates: start: 20160209
  25. COCODAMOL [Concomitant]
     Active Substance: ACETAMINOPHEN\CODEINE PHOSPHATE
     Dosage: 2 DF, UNK (TWO CAN BE TAKEN UP TO FOUR TIMES DAILY)
     Dates: start: 20171204
  26. PREGABALIN. [Concomitant]
     Active Substance: PREGABALIN
     Dosage: 3 DF, 1X/DAY
     Dates: start: 20181001
  27. TADALAFIL. [Concomitant]
     Active Substance: TADALAFIL
     Dosage: UNK (TAKE ONE OR TWO TABLETS 30MINUTES)
     Dates: start: 20180917
  28. BISACODYL. [Concomitant]
     Active Substance: BISACODYL
     Dosage: 1 DF, 1X/DAY (POST OPERATION)
     Dates: start: 20180410
  29. QUININE [Concomitant]
     Active Substance: QUININE
     Dosage: 1 DF, 1X/DAY (AT NIGHT)
     Dates: start: 20160209

REACTIONS (2)
  - Mouth swelling [Unknown]
  - Lip swelling [Unknown]

NARRATIVE: CASE EVENT DATE: 20181105
